FAERS Safety Report 15632413 (Version 1)
Quarter: 2018Q4

REPORT INFORMATION
  Report Type: Spontaneous
  Country: BR (occurrence: BR)
  Receive Date: 20181119
  Receipt Date: 20181119
  Transmission Date: 20190205
  Serious: Yes (Other)
  Sender: FDA-Public Use
  Company Number: BR-009507513-1811BRA006147

PATIENT
  Sex: Male
  Weight: 79 kg

DRUGS (8)
  1. FUROSEMIDE. [Concomitant]
     Active Substance: FUROSEMIDE
     Indication: LUNG DISORDER
     Dosage: 50 MILLIGRAM, UNK; START DATE: APPROXIMATELY ON 2008, REPORTED AS ^ABOUT 10 YEARS AGO^
     Dates: start: 2008
  2. ALDACTONE [Concomitant]
     Active Substance: SPIRONOLACTONE
     Indication: LUNG DISORDER
     Dosage: 25 MILLIGRAM, UNK; START DATE APPROXIMATELY ON 2008, REPORTED AS ^ABOUT 10 YEARS AGO^
     Dates: start: 2008
  3. LOSARTAN POTASSIUM. [Suspect]
     Active Substance: LOSARTAN POTASSIUM
     Indication: BLOOD PRESSURE ABNORMAL
     Dosage: 1 TABLET DAILY
     Route: 048
     Dates: start: 2008
  4. FUROSEMIDE. [Concomitant]
     Active Substance: FUROSEMIDE
     Indication: DIURETIC THERAPY
  5. FORASEQ [Concomitant]
     Active Substance: BUDESONIDE\FORMOTEROL FUMARATE
     Indication: ASTHMA
     Dosage: 200 MICROGRAM, UNK
     Dates: start: 2002
  6. FUROSEMIDE. [Concomitant]
     Active Substance: FUROSEMIDE
     Indication: CARDIAC DISORDER
  7. AMIODARONE [Concomitant]
     Active Substance: AMIODARONE
     Indication: ARRHYTHMIA
     Dosage: 200 MILLIGRAM, UNK; START DATE: APPROXIMATELY ON 2008, REPORTED AS ^ABOUT 10 YEARS AGO^
     Dates: start: 2008
  8. DIAZEPAM. [Concomitant]
     Active Substance: DIAZEPAM
     Indication: INSOMNIA
     Dosage: 1 TABLET DAILY; START DATE APPROXIMATELY ON 2003, REPORTED AS ^MORE THAN 15 YEARS AGO^
     Route: 048
     Dates: start: 2003

REACTIONS (3)
  - Emphysema [Unknown]
  - Diabetes mellitus [Unknown]
  - Cough [Unknown]
